FAERS Safety Report 6805940-1 (Version None)
Quarter: 2010Q2

REPORT INFORMATION
  Report Type: 
  Country: None (occurrence: None)
  Receive Date: 20100629
  Receipt Date: 20071210
  Transmission Date: 20101027
  Serious: Yes (Other)
  Sender: FDA-Public Use
  Company Number: US-PFIZER INC-2007075791

PATIENT
  Sex: Male
  Weight: 73.636 kg

DRUGS (6)
  1. TIKOSYN [Suspect]
     Indication: ATRIAL FIBRILLATION
     Route: 048
  2. ATENOLOL [Concomitant]
  3. ENALAPRIL MALEATE [Concomitant]
  4. COUMADIN [Concomitant]
  5. POTASSIUM [Concomitant]
  6. MAGNESIUM [Concomitant]

REACTIONS (1)
  - ATRIAL FIBRILLATION [None]
